FAERS Safety Report 7719802-9 (Version None)
Quarter: 2011Q3

REPORT INFORMATION
  Report Type: 
  Country: None (occurrence: None)
  Receive Date: 20110831
  Receipt Date: 20110823
  Transmission Date: 20111222
  Serious: No
  Sender: FDA-Public Use
  Company Number: US-BIOGENIDEC-2011BI006358

PATIENT
  Age: 51 Year
  Sex: Female

DRUGS (2)
  1. BETASERON [Concomitant]
     Indication: PRODUCT USED FOR UNKNOWN INDICATION
  2. TYSABRI [Suspect]
     Indication: MULTIPLE SCLEROSIS
     Route: 042
     Dates: start: 20100217

REACTIONS (3)
  - SKIN LESION [None]
  - DEPRESSION [None]
  - DRY SKIN [None]
